FAERS Safety Report 12066984 (Version 3)
Quarter: 2017Q1

REPORT INFORMATION
  Report Type: Spontaneous
  Country: US (occurrence: US)
  Receive Date: 20160210
  Receipt Date: 20170309
  Transmission Date: 20170428
  Serious: No
  Sender: FDA-Public Use
  Company Number: US-JNJFOC-20160109953

PATIENT
  Age: 5 Year
  Sex: Male

DRUGS (27)
  1. RISPERDAL [Suspect]
     Active Substance: RISPERIDONE
     Indication: MAJOR DEPRESSION
     Dosage: 1 IN MORNING AND 1 AND 1/2 IN NIGHT
     Route: 048
     Dates: start: 20020813
  2. RISPERDAL [Suspect]
     Active Substance: RISPERIDONE
     Indication: ATTENTION DEFICIT/HYPERACTIVITY DISORDER
     Dosage: 1/4 ONCE IN NIGHT
     Route: 048
     Dates: start: 20020514, end: 200205
  3. RISPERDAL [Suspect]
     Active Substance: RISPERIDONE
     Indication: ATTENTION DEFICIT/HYPERACTIVITY DISORDER
     Dosage: 1 IN MORNING, 1 IN AFTERNOON  AND 2 IN NIGHT
     Route: 048
     Dates: start: 20030123, end: 2003
  4. INVEGA [Suspect]
     Active Substance: PALIPERIDONE
     Indication: ATTENTION DEFICIT/HYPERACTIVITY DISORDER
     Route: 048
     Dates: end: 2008
  5. RISPERDAL [Suspect]
     Active Substance: RISPERIDONE
     Indication: MAJOR DEPRESSION
     Dosage: 1 IN MORNING, 1 IN AFTERNOON  AND 2 IN NIGHT
     Route: 048
     Dates: start: 20030123, end: 2003
  6. RISPERDAL [Suspect]
     Active Substance: RISPERIDONE
     Indication: MAJOR DEPRESSION
     Dosage: 1/2 IN MORNING, 1/2 IN AFTERNOON AND 1 IN NIGHT
     Route: 048
     Dates: start: 20070102, end: 200709
  7. RISPERIDONE. [Suspect]
     Active Substance: RISPERIDONE
     Indication: PRODUCT USED FOR UNKNOWN INDICATION
     Route: 048
  8. RISPERDAL [Suspect]
     Active Substance: RISPERIDONE
     Indication: MAJOR DEPRESSION
     Dosage: 2 IN MORNING, 1 IN AFTERNOON 1 IN EVENING AND 2 IN NIGHT
     Route: 048
     Dates: start: 20031028, end: 200406
  9. RISPERDAL [Suspect]
     Active Substance: RISPERIDONE
     Indication: ATTENTION DEFICIT/HYPERACTIVITY DISORDER
     Dosage: 1/4 ONCE IN NIGHT AND 1/2 IN MORNING
     Route: 048
     Dates: start: 20020521, end: 200205
  10. INVEGA [Suspect]
     Active Substance: PALIPERIDONE
     Indication: ATTENTION DEFICIT/HYPERACTIVITY DISORDER
     Dosage: IN VARYING DOSES OF 3 MG, 6 MG, 9 MG
     Route: 048
     Dates: start: 200709, end: 200807
  11. RISPERDAL [Suspect]
     Active Substance: RISPERIDONE
     Indication: MAJOR DEPRESSION
     Dosage: 1/2 ONCE IN MORNING AND 1 IN NIGHT
     Route: 048
     Dates: start: 20020730, end: 2002
  12. RISPERDAL [Suspect]
     Active Substance: RISPERIDONE
     Indication: MAJOR DEPRESSION
     Route: 048
     Dates: start: 200905, end: 201402
  13. RISPERDAL [Suspect]
     Active Substance: RISPERIDONE
     Indication: ATTENTION DEFICIT/HYPERACTIVITY DISORDER
     Route: 048
     Dates: end: 2014
  14. RISPERDAL [Suspect]
     Active Substance: RISPERIDONE
     Indication: ATTENTION DEFICIT/HYPERACTIVITY DISORDER
     Dosage: 1 IN MORNING AND 1 AND 1/2 IN NIGHT
     Route: 048
     Dates: start: 20020813
  15. RISPERDAL [Suspect]
     Active Substance: RISPERIDONE
     Indication: ATTENTION DEFICIT/HYPERACTIVITY DISORDER
     Dosage: 1/2 IN MORNING, 1/2 IN AFTERNOON AND 1 IN NIGHT
     Route: 048
     Dates: start: 20070102, end: 200709
  16. INVEGA [Suspect]
     Active Substance: PALIPERIDONE
     Indication: MAJOR DEPRESSION
     Dosage: IN VARYING DOSES OF 3 MG, 6 MG, 9 MG
     Route: 048
     Dates: start: 200709, end: 200807
  17. RISPERDAL [Suspect]
     Active Substance: RISPERIDONE
     Indication: MAJOR DEPRESSION
     Dosage: 1/2 ONCE IN NIGHT AND 1/2 IN MORNING
     Route: 048
     Dates: start: 20020531, end: 2002
  18. RISPERDAL [Suspect]
     Active Substance: RISPERIDONE
     Indication: MAJOR DEPRESSION
     Route: 048
     Dates: start: 200408
  19. RISPERDAL [Suspect]
     Active Substance: RISPERIDONE
     Indication: ATTENTION DEFICIT/HYPERACTIVITY DISORDER
     Dosage: 1/2 ONCE IN NIGHT AND 1/2 IN MORNING
     Route: 048
     Dates: start: 20020531, end: 2002
  20. RISPERDAL [Suspect]
     Active Substance: RISPERIDONE
     Indication: MAJOR DEPRESSION
     Dosage: 1/4 ONCE IN NIGHT
     Route: 048
     Dates: start: 20020514, end: 200205
  21. RISPERDAL [Suspect]
     Active Substance: RISPERIDONE
     Indication: ATTENTION DEFICIT/HYPERACTIVITY DISORDER
     Route: 048
     Dates: start: 200905, end: 201402
  22. RISPERDAL [Suspect]
     Active Substance: RISPERIDONE
     Indication: ATTENTION DEFICIT/HYPERACTIVITY DISORDER
     Dosage: 2 IN MORNING, 1 IN AFTERNOON 1 IN EVENING AND 2 IN NIGHT
     Route: 048
     Dates: start: 20031028, end: 200406
  23. RISPERDAL [Suspect]
     Active Substance: RISPERIDONE
     Indication: ATTENTION DEFICIT/HYPERACTIVITY DISORDER
     Dosage: 1/2 ONCE IN MORNING AND 1 IN NIGHT
     Route: 048
     Dates: start: 20020730, end: 2002
  24. INVEGA [Suspect]
     Active Substance: PALIPERIDONE
     Indication: MAJOR DEPRESSION
     Route: 048
     Dates: end: 2008
  25. RISPERDAL [Suspect]
     Active Substance: RISPERIDONE
     Indication: MAJOR DEPRESSION
     Dosage: 1/4 ONCE IN NIGHT AND 1/2 IN MORNING
     Route: 048
     Dates: start: 20020521, end: 200205
  26. RISPERDAL [Suspect]
     Active Substance: RISPERIDONE
     Indication: MAJOR DEPRESSION
     Route: 048
     Dates: end: 2014
  27. RISPERDAL [Suspect]
     Active Substance: RISPERIDONE
     Indication: ATTENTION DEFICIT/HYPERACTIVITY DISORDER
     Route: 048
     Dates: start: 200408

REACTIONS (4)
  - Off label use [Unknown]
  - Product use issue [Unknown]
  - Abnormal weight gain [Unknown]
  - Gynaecomastia [Unknown]

NARRATIVE: CASE EVENT DATE: 200205
